FAERS Safety Report 15701081 (Version 1)
Quarter: 2018Q4

REPORT INFORMATION
  Report Type: Report from Study
  Country: FR (occurrence: FR)
  Receive Date: 20181207
  Receipt Date: 20181207
  Transmission Date: 20190205
  Serious: Yes (Hospitalization)
  Sender: FDA-Public Use
  Company Number: FR-SA-2018SA319161

PATIENT
  Age: 55 Year
  Weight: 94 kg

DRUGS (2)
  1. VANDETANIB. [Suspect]
     Active Substance: VANDETANIB
     Dosage: 300 MG, QCY
     Route: 048
     Dates: start: 20180914, end: 20180914
  2. VANDETANIB. [Suspect]
     Active Substance: VANDETANIB
     Dosage: 300 MG, QCY
     Route: 048
     Dates: start: 20181115, end: 20181115

REACTIONS (1)
  - Pneumonitis [Recovered/Resolved]

NARRATIVE: CASE EVENT DATE: 20181115
